FAERS Safety Report 18046106 (Version 3)
Quarter: 2020Q3

REPORT INFORMATION
  Report Type: Report from Study
  Country: US (occurrence: US)
  Receive Date: 20200720
  Receipt Date: 20200825
  Transmission Date: 20201103
  Serious: No
  Sender: FDA-Public Use
  Company Number: NVSC2020US201837

PATIENT
  Sex: Female

DRUGS (1)
  1. PIQRAY [Suspect]
     Active Substance: ALPELISIB
     Indication: PRODUCT USED FOR UNKNOWN INDICATION
     Dosage: UNK
     Route: 048

REACTIONS (13)
  - Peripheral coldness [Unknown]
  - Oral pain [Unknown]
  - Mouth injury [Unknown]
  - Blood pressure increased [Unknown]
  - Asthenia [Unknown]
  - Decreased appetite [Unknown]
  - Nausea [Unknown]
  - Dry mouth [Unknown]
  - Erythema [Unknown]
  - Diarrhoea [Unknown]
  - Feeding disorder [Unknown]
  - Drug intolerance [Recovered/Resolved with Sequelae]
  - Vomiting [Unknown]
